FAERS Safety Report 9793114 (Version 2)
Quarter: 2014Q1

REPORT INFORMATION
  Report Type: Spontaneous
  Country: US (occurrence: US)
  Receive Date: 20140102
  Receipt Date: 20140102
  Transmission Date: 20141002
  Serious: Yes (Hospitalization, Other)
  Sender: FDA-Public Use
  Company Number: US-PFIZER INC-2013346001

PATIENT
  Age: 70 Year
  Sex: Female

DRUGS (3)
  1. ENBREL [Suspect]
     Indication: PSORIASIS
     Dosage: 50 MG, 2 TIMES/WK
     Route: 065
     Dates: start: 20040218
  2. CHANTIX [Suspect]
     Indication: EX-TOBACCO USER
     Dosage: UNK
     Route: 065
  3. NICODERM [Suspect]
     Indication: EX-TOBACCO USER
     Dosage: UNK
     Route: 065

REACTIONS (11)
  - Breast cancer [Recovered/Resolved]
  - Activities of daily living impaired [Not Recovered/Not Resolved]
  - Respiratory disorder [Not Recovered/Not Resolved]
  - Dyspnoea [Not Recovered/Not Resolved]
  - Psoriasis [Not Recovered/Not Resolved]
  - Alopecia [Recovered/Resolved]
  - Feeling abnormal [Not Recovered/Not Resolved]
  - Trichorrhexis [Recovered/Resolved]
  - Nervousness [Unknown]
  - Insomnia [Unknown]
  - Nightmare [Unknown]
